FAERS Safety Report 21978549 (Version 1)
Quarter: 2023Q1

REPORT INFORMATION
  Report Type: Spontaneous
  Country: US (occurrence: US)
  Receive Date: 20230210
  Receipt Date: 20230210
  Transmission Date: 20230418
  Serious: No
  Sender: FDA-Public Use
  Company Number: US-PFIZER INC-PV202300025713

PATIENT
  Age: 70 Year
  Sex: Female

DRUGS (12)
  1. IBRANCE [Suspect]
     Active Substance: PALBOCICLIB
     Indication: Breast cancer
     Dosage: 125 MG, CYCLIC (DAILY FOR 21 DAYS FOLLOWED BY 7 DAYS OFF)
     Route: 048
     Dates: start: 20220714
  2. LETROZOLE [Concomitant]
     Active Substance: LETROZOLE
  3. AMLODIPINE [Concomitant]
     Active Substance: AMLODIPINE BESYLATE
  4. HYDROCHLOROTHIAZIDE [Concomitant]
     Active Substance: HYDROCHLOROTHIAZIDE
  5. FOLIC ACID [Concomitant]
     Active Substance: FOLIC ACID
  6. LOSARTAN [Concomitant]
     Active Substance: LOSARTAN
  7. DICLOXACILLIN [Concomitant]
     Active Substance: DICLOXACILLIN
  8. POTASSIUM [Concomitant]
     Active Substance: POTASSIUM
  9. AUGMENTIN [Concomitant]
     Active Substance: AMOXICILLIN\CLAVULANATE POTASSIUM
  10. CELECOXIB [Concomitant]
     Active Substance: CELECOXIB
  11. BACITRACIN [Concomitant]
     Active Substance: BACITRACIN
  12. XARELTO [Concomitant]
     Active Substance: RIVAROXABAN

REACTIONS (1)
  - Visual impairment [Unknown]
